FAERS Safety Report 4433451-X (Version None)
Quarter: 2004Q3

REPORT INFORMATION
  Report Type: 
  Country: None (occurrence: None)
  Receive Date: 20040824
  Receipt Date: 20040811
  Transmission Date: 20050211
  Serious: Yes (Hospitalization)
  Sender: FDA-Public Use
  Company Number: MK200408-0112-1

PATIENT
  Age: 76 Year
  Sex: Male

DRUGS (1)
  1. CONRAY [Suspect]
     Indication: SPINAL MYELOGRAM
     Dosage: 10CC,ONCE
     Dates: start: 20040811, end: 20040811

REACTIONS (3)
  - MEDICATION ERROR [None]
  - MUSCLE CRAMP [None]
  - PROCEDURAL COMPLICATION [None]
